FAERS Safety Report 5502986-0 (Version None)
Quarter: 2007Q4

REPORT INFORMATION
  Report Type: 
  Country: None (occurrence: None)
  Receive Date: 20071029
  Receipt Date: 20071029
  Transmission Date: 20080405
  Serious: Yes (Disabling)
  Sender: FDA-Public Use
  Company Number: None

PATIENT
  Age: 28 Year
  Sex: Female
  Weight: 63.5036 kg

DRUGS (1)
  1. YAZ [Suspect]
     Indication: ORAL CONTRACEPTION
     Dosage: 20MG  QD  PO
     Route: 048
     Dates: start: 20070916, end: 20070923

REACTIONS (5)
  - HYPOTENSION [None]
  - PRURITUS GENERALISED [None]
  - PYREXIA [None]
  - SKIN REACTION [None]
  - URTICARIA [None]
